FAERS Safety Report 13432880 (Version 2)
Quarter: 2017Q2

REPORT INFORMATION
  Report Type: Spontaneous
  Country: US (occurrence: US)
  Receive Date: 20170412
  Receipt Date: 20170428
  Transmission Date: 20170830
  Serious: Yes (Life-Threatening, Other)
  Sender: FDA-Public Use
  Company Number: US-LUNDBECK-DKLU2029162

PATIENT
  Age: 58 Year
  Sex: Male

DRUGS (5)
  1. NORTHERA [Suspect]
     Active Substance: DROXIDOPA
     Indication: PRODUCT USED FOR UNKNOWN INDICATION
     Dosage: TITRATION COMPLETE
     Route: 065
  2. NORTHERA [Suspect]
     Active Substance: DROXIDOPA
     Dosage: SCHEDULE B
     Route: 065
  3. NORTHERA [Suspect]
     Active Substance: DROXIDOPA
     Dosage: SCHEDULE B
     Route: 065
  4. NORTHERA [Suspect]
     Active Substance: DROXIDOPA
     Dosage: SCHEDULE B
     Route: 065
  5. NORTHERA [Suspect]
     Active Substance: DROXIDOPA
     Dosage: SCHEDULE B
     Route: 065
     Dates: start: 20160201

REACTIONS (7)
  - Loss of consciousness [Unknown]
  - Inappropriate schedule of drug administration [Unknown]
  - Movement disorder [Unknown]
  - Condition aggravated [Unknown]
  - Autonomic nervous system imbalance [Unknown]
  - Terminal state [Unknown]
  - Fall [Unknown]

NARRATIVE: CASE EVENT DATE: 201610
